FAERS Safety Report 11917707 (Version 1)
Quarter: 2016Q1

REPORT INFORMATION
  Report Type: Spontaneous
  Country: US (occurrence: US)
  Receive Date: 20160114
  Receipt Date: 20160114
  Transmission Date: 20160526
  Serious: No
  Sender: FDA-Public Use
  Company Number: US-TEVA-625582USA

PATIENT
  Age: 59 Year
  Sex: Female

DRUGS (5)
  1. FUROSEMIDE. [Concomitant]
     Active Substance: FUROSEMIDE
     Dates: start: 20090829
  2. BACLOFEN. [Concomitant]
     Active Substance: BACLOFEN
     Dates: start: 20090829
  3. ADVIL [Concomitant]
     Active Substance: IBUPROFEN
     Dates: start: 20090829
  4. COPAXONE [Suspect]
     Active Substance: GLATIRAMER ACETATE
     Indication: MULTIPLE SCLEROSIS
     Route: 058
     Dates: start: 201506, end: 201601
  5. NALTREXONE [Concomitant]
     Active Substance: NALTREXONE
     Dates: start: 20090829

REACTIONS (1)
  - Hypoaesthesia [Unknown]
